FAERS Safety Report 5162397-7 (Version None)
Quarter: 2006Q4

REPORT INFORMATION
  Report Type: 
  Country: None (occurrence: None)
  Receive Date: 20061128
  Receipt Date: 20061128
  Transmission Date: 20070319
  Serious: Yes (Other)
  Sender: FDA-Public Use
  Company Number: None

PATIENT
  Age: 65 Year
  Sex: Male
  Weight: 59.4212 kg

DRUGS (21)
  1. METOCLOPRAMIDE [Suspect]
     Indication: NAUSEA
     Dosage: 10 MG BEFORE MEALS + HS
     Dates: start: 20060301, end: 20060601
  2. OXYCODONE/ACETAMINOPHEN [Concomitant]
  3. MS CONTIN [Concomitant]
  4. ALPRAZOLAM [Concomitant]
  5. CYANOCOBALAMIN [Concomitant]
  6. LANOXIN [Concomitant]
  7. SIMETHICONE [Concomitant]
  8. FUROSEMIDE [Concomitant]
  9. NITRO-DUR [Concomitant]
  10. DOCUSATE NA [Concomitant]
  11. LORATADINE [Concomitant]
  12. OMEPRAZOLE SA [Concomitant]
  13. POTASSIUM CHLORIDE EXT REL [Concomitant]
  14. CLOPIDOGREL [Concomitant]
  15. SIMVASTATIN [Concomitant]
  16. ALLOPURINOL [Concomitant]
  17. GABAPENTIN [Concomitant]
  18. FLUOXETINE HCL [Concomitant]
  19. ASPIRIN [Concomitant]
  20. CELECOXIB [Concomitant]
  21. OXYBUTNIN CHLORIDE [Concomitant]

REACTIONS (2)
  - DYSKINESIA [None]
  - LIP DISORDER [None]
